FAERS Safety Report 8130333-7 (Version None)
Quarter: 2012Q1

REPORT INFORMATION
  Report Type: 
  Country: None (occurrence: None)
  Receive Date: 20120210
  Receipt Date: 20120206
  Transmission Date: 20120608
  Serious: Yes (Disabling, Other)
  Sender: FDA-Public Use
  Company Number: PHEH2011US01043

PATIENT
  Sex: Female

DRUGS (19)
  1. PIOGLITAZONE HYDROCHLORIDE [Concomitant]
     Dosage: 15 MG, QD
  2. LACTAID [Concomitant]
     Dosage: UNK UKN, UNK
  3. FOSAMAX [Concomitant]
     Dosage: 70 MG, QW
     Route: 048
     Dates: start: 20090918
  4. PYRIDOXINE HCL [Concomitant]
     Dosage: UNK UKN, UNK
  5. ESIDRIX [Concomitant]
     Dosage: 12.5 MG, QD
     Route: 048
     Dates: start: 20110526
  6. ACE INHIBITORS [Concomitant]
     Dosage: UNK UKN, UNK
  7. VITAMIN D [Concomitant]
     Dosage: 500 IU, QD
     Route: 048
  8. PLAVIX [Concomitant]
     Dosage: 75 MG, UNK
  9. CYANOCOBALAMIN [Concomitant]
     Dosage: 1 ML, QW
     Route: 060
     Dates: start: 20111012
  10. ALBUTEROL SULFATE AND IPRATROPIUM BROMIDE [Concomitant]
     Dosage: UNK UKN, Q6H
  11. EXJADE [Suspect]
     Indication: IRON OVERLOAD
     Dosage: 1000 MG, QD
     Route: 048
     Dates: start: 20110804, end: 20120101
  12. ZOLOFT [Concomitant]
     Dosage: 100 MG, QD
  13. OXYGEN [Concomitant]
     Dosage: 5 L, UNK
  14. GLUCOPHAGE [Concomitant]
     Dosage: 500 MG, UNK
  15. ZINC SULFATE [Concomitant]
     Dosage: 50 MG, QD
  16. SPIRIVA [Concomitant]
     Dosage: ONE PUFF EVERY MORNING
  17. VITAMIN B-12 [Concomitant]
     Dosage: 1000 MG, QW
     Route: 058
     Dates: start: 20100811
  18. PRINIVIL [Concomitant]
     Dosage: 10 MG, UNK
  19. FISH OIL [Concomitant]
     Dosage: UNK UKN, BID

REACTIONS (20)
  - LIVER DISORDER [None]
  - SERUM FERRITIN INCREASED [None]
  - DEPRESSION [None]
  - MALAISE [None]
  - SOMNOLENCE [None]
  - BLOOD UREA INCREASED [None]
  - EATING DISORDER [None]
  - EPIGASTRIC DISCOMFORT [None]
  - LETHARGY [None]
  - NAUSEA [None]
  - ASTHENIA [None]
  - HEPATIC FUNCTION ABNORMAL [None]
  - BLOOD CREATININE INCREASED [None]
  - BLOOD GLUCOSE INCREASED [None]
  - FATIGUE [None]
  - DIARRHOEA [None]
  - RENAL DISORDER [None]
  - MONOCYTE PERCENTAGE INCREASED [None]
  - MONOCYTE COUNT INCREASED [None]
  - HAEMOGLOBIN DECREASED [None]
